FAERS Safety Report 13615203 (Version 1)
Quarter: 2017Q2

REPORT INFORMATION
  Report Type: Spontaneous
  Country: FI (occurrence: FI)
  Receive Date: 20170606
  Receipt Date: 20170606
  Transmission Date: 20170830
  Serious: Yes (Disabling, Other)
  Sender: FDA-Public Use
  Company Number: PHHY2017FI081034

PATIENT
  Sex: Female

DRUGS (2)
  1. ACLASTA [Suspect]
     Active Substance: ZOLEDRONIC ACID
     Indication: ALBRIGHT^S DISEASE
     Dosage: ONE INFUSION WAS GIVEN IN 15 MINUTES
     Route: 065
     Dates: start: 201704, end: 201704
  2. ACLASTA [Suspect]
     Active Substance: ZOLEDRONIC ACID
     Indication: OSTEODYSTROPHY

REACTIONS (7)
  - Pain [Not Recovered/Not Resolved]
  - Vasculitis [Unknown]
  - Myalgia [Not Recovered/Not Resolved]
  - Haemolysis [Unknown]
  - Dehydration [Unknown]
  - Muscle spasms [Not Recovered/Not Resolved]
  - Product use in unapproved indication [Unknown]

NARRATIVE: CASE EVENT DATE: 201704
